FAERS Safety Report 9463256 (Version 2)
Quarter: 2013Q3

REPORT INFORMATION
  Report Type: Spontaneous
  Country: US (occurrence: US)
  Receive Date: 20130819
  Receipt Date: 20130826
  Transmission Date: 20140515
  Serious: Yes (Hospitalization)
  Sender: FDA-Public Use
  Company Number: US-ROCHE-1262668

PATIENT
  Age: 64 Year
  Sex: Male

DRUGS (6)
  1. PEGASYS [Suspect]
     Indication: HEPATITIS B
     Route: 058
     Dates: start: 20130619
  2. PEGASYS [Suspect]
     Indication: HEPATITIS C
     Route: 058
  3. RIBASPHERE [Suspect]
     Indication: HEPATITIS B
     Dosage: EVERY MORNING AND EVERY EVENING
     Route: 048
     Dates: start: 20130619
  4. RIBASPHERE [Suspect]
     Indication: HEPATITIS C
  5. FLOMAX (UNITED STATES) [Concomitant]
  6. PRILOSEC [Concomitant]

REACTIONS (3)
  - Fall [Unknown]
  - Sepsis [Not Recovered/Not Resolved]
  - Hepatic failure [Unknown]
